FAERS Safety Report 19162481 (Version 1)
Quarter: 2021Q2

REPORT INFORMATION
  Report Type: Report from Study
  Country: None (occurrence: FR)
  Receive Date: 20210420
  Receipt Date: 20210420
  Transmission Date: 20210717
  Serious: Yes (Hospitalization, Other)
  Sender: FDA-Public Use
  Company Number: FR-ABBVIE-21K-056-3865884-00

PATIENT
  Age: 82 Year
  Sex: Female

DRUGS (2)
  1. DUODOPA [Suspect]
     Active Substance: CARBIDOPA\LEVODOPA
     Indication: PARKINSON^S DISEASE
     Route: 050
     Dates: start: 2018
  2. DUODOPA [Suspect]
     Active Substance: CARBIDOPA\LEVODOPA

REACTIONS (5)
  - Device dislocation [Unknown]
  - Cerebrovascular accident [Not Recovered/Not Resolved]
  - Device issue [Unknown]
  - General physical health deterioration [Not Recovered/Not Resolved]
  - Endoscopy abnormal [Unknown]

NARRATIVE: CASE EVENT DATE: 202104
